FAERS Safety Report 5248645-3 (Version None)
Quarter: 2007Q1

REPORT INFORMATION
  Report Type: 
  Country: None (occurrence: None)
  Receive Date: 20070226
  Receipt Date: 20070226
  Transmission Date: 20070707
  Serious: Yes (Life-Threatening, Hospitalization, Other)
  Sender: FDA-Public Use
  Company Number: None

PATIENT
  Sex: Female
  Weight: 88.4514 kg

DRUGS (1)
  1. ZONISAMIDE [Suspect]
     Indication: CONVULSION
     Dosage: 2 PILLS TWICE A DAY PO
     Route: 048
     Dates: start: 20060712, end: 20070308

REACTIONS (12)
  - AMNESIA [None]
  - ANTICONVULSANT DRUG LEVEL ABOVE THERAPEUTIC [None]
  - BLOOD PRESSURE ABNORMAL [None]
  - CHEST PAIN [None]
  - CHROMATURIA [None]
  - CONFUSIONAL STATE [None]
  - CRYING [None]
  - DISORIENTATION [None]
  - DYSPNOEA [None]
  - PARAESTHESIA [None]
  - SPEECH DISORDER [None]
  - VOMITING [None]
